FAERS Safety Report 9258992 (Version 1)
Quarter: 2013Q2

REPORT INFORMATION
  Report Type: Spontaneous
  Country: CZ (occurrence: CZ)
  Receive Date: 20130426
  Receipt Date: 20130426
  Transmission Date: 20140414
  Serious: Yes (Hospitalization, Other)
  Sender: FDA-Public Use
  Company Number: CZ-ABBOTT-13P-217-1080622-00

PATIENT
  Age: 65 Year
  Sex: Female

DRUGS (11)
  1. HUMIRA [Suspect]
     Indication: CROHN^S DISEASE
     Route: 058
     Dates: start: 20120411, end: 20130327
  2. VIGANTOL/COLECALCIFEROLUM [Concomitant]
     Indication: PRODUCT USED FOR UNKNOWN INDICATION
     Dosage: CHRONIC ADMINISTRATION
  3. SALOFALK/ MESALAZINUM [Concomitant]
     Indication: PRODUCT USED FOR UNKNOWN INDICATION
  4. CALTRATE PLUS/ CALCII CARBONAS [Concomitant]
     Indication: PRODUCT USED FOR UNKNOWN INDICATION
  5. MANGANI SULFAS MONOHYDRICUS [Concomitant]
     Indication: PRODUCT USED FOR UNKNOWN INDICATION
  6. MAGNESII OXIDUM [Concomitant]
     Indication: PRODUCT USED FOR UNKNOWN INDICATION
  7. ZINCI OXIDUM [Concomitant]
     Indication: PRODUCT USED FOR UNKNOWN INDICATION
  8. NATRIITETRABORAS DECAHYDRICUS [Concomitant]
     Indication: PRODUCT USED FOR UNKNOWN INDICATION
  9. CUPRI OXIDUM [Concomitant]
     Indication: PRODUCT USED FOR UNKNOWN INDICATION
  10. ZOREM/AMLODIPINI BESILAS [Concomitant]
     Indication: PRODUCT USED FOR UNKNOWN INDICATION
  11. ZOREM/AMLODIPINI BESILAS [Concomitant]
     Indication: PRODUCT USED FOR UNKNOWN INDICATION

REACTIONS (2)
  - Face oedema [Recovered/Resolved]
  - Urticaria [Recovered/Resolved]
